FAERS Safety Report 18408398 (Version 1)
Quarter: 2020Q4

REPORT INFORMATION
  Report Type: Spontaneous
  Country: US (occurrence: US)
  Receive Date: 20201020
  Receipt Date: 20201020
  Transmission Date: 20210114
  Serious: No
  Sender: FDA-Public Use
  Company Number: None

PATIENT
  Sex: Female

DRUGS (2)
  1. GONAL-F RFF REDI-JECT [Suspect]
     Active Substance: FOLLITROPIN
     Indication: INFERTILITY FEMALE
     Dosage: ?          OTHER DOSE:75-450UNITS ;?
     Route: 058
     Dates: start: 202004
  2. CETROTIDE [Suspect]
     Active Substance: CETRORELIX ACETATE
     Route: 058
     Dates: start: 202004

REACTIONS (2)
  - Injection site pain [None]
  - Product preparation issue [None]
